FAERS Safety Report 17983424 (Version 3)
Quarter: 2021Q1

REPORT INFORMATION
  Report Type: Spontaneous
  Country: US (occurrence: US)
  Receive Date: 20200706
  Receipt Date: 20210215
  Transmission Date: 20210419
  Serious: Yes (Other)
  Sender: FDA-Public Use
  Company Number: US-GILEAD-2020-0479229

PATIENT
  Age: 25 Year
  Sex: Male

DRUGS (1)
  1. TRUVADA [Suspect]
     Active Substance: EMTRICITABINE\TENOFOVIR DISOPROXIL FUMARATE
     Indication: PROPHYLAXIS AGAINST HIV INFECTION
     Dosage: UNK
     Route: 048
     Dates: start: 20170313, end: 20170613

REACTIONS (5)
  - Bone density decreased [Unknown]
  - Osteonecrosis [Unknown]
  - Multiple fractures [Recovered/Resolved]
  - Skeletal injury [Unknown]
  - Bone loss [Unknown]

NARRATIVE: CASE EVENT DATE: 20171002
